FAERS Safety Report 17863345 (Version 3)
Quarter: 2020Q3

REPORT INFORMATION
  Report Type: Spontaneous
  Country: CN (occurrence: CN)
  Receive Date: 20200604
  Receipt Date: 20200727
  Transmission Date: 20201103
  Serious: Yes (Other)
  Sender: FDA-Public Use
  Company Number: CN-BEH-2020118101

PATIENT
  Age: 34 Year
  Sex: Female

DRUGS (1)
  1. ALBURX [Suspect]
     Active Substance: ALBUMIN HUMAN
     Indication: IMMUNODEFICIENCY
     Dosage: 1 VIAL, TOT
     Route: 065
     Dates: start: 20200516, end: 20200516

REACTIONS (9)
  - Appendicitis [Recovered/Resolved]
  - Enterocolitis [Recovered/Resolved]
  - No adverse event [Unknown]
  - Lymphadenopathy [Recovered/Resolved]
  - Abdominal pain [Recovered/Resolved]
  - Product use in unapproved indication [Unknown]
  - White blood cell count increased [Unknown]
  - Pyrexia [Recovered/Resolved]
  - Inflammation [Unknown]

NARRATIVE: CASE EVENT DATE: 20200523
